FAERS Safety Report 6196363-X (Version None)
Quarter: 2009Q2

REPORT INFORMATION
  Report Type: 
  Country: None (occurrence: None)
  Receive Date: 20090520
  Receipt Date: 20090512
  Transmission Date: 20091009
  Serious: Yes (Hospitalization)
  Sender: FDA-Public Use
  Company Number: US-WYE-H09313209

PATIENT
  Sex: Female

DRUGS (3)
  1. PRISTIQ [Suspect]
     Indication: DEPRESSION
     Route: 048
     Dates: start: 20090201, end: 20090301
  2. PRISTIQ [Suspect]
     Route: 048
     Dates: start: 20090509
  3. CLONAZEPAM [Concomitant]
     Dosage: UNKNOWN
     Dates: start: 20090501

REACTIONS (5)
  - AGGRESSION [None]
  - DEPRESSION [None]
  - DRUG WITHDRAWAL SYNDROME [None]
  - INSOMNIA [None]
  - PRURITUS [None]
